FAERS Safety Report 4567234-7 (Version None)
Quarter: 2005Q1

REPORT INFORMATION
  Report Type: 
  Country: None (occurrence: None)
  Receive Date: 20050127
  Receipt Date: 20050120
  Transmission Date: 20050727
  Serious: Yes (Hospitalization, Other)
  Sender: FDA-Public Use
  Company Number: 2002-09-0228

PATIENT
  Age: 46 Year
  Sex: Female
  Weight: 56.6996 kg

DRUGS (3)
  1. PEG-INTRON [Suspect]
     Indication: HEPATITIS C
     Dosage: 50-60 MCG QWK INTRAMUSCULAR
     Route: 030
     Dates: start: 20020118, end: 20020829
  2. REBETOL [Suspect]
     Indication: HEPATITIS C
     Dosage: 400-800 MG QD ORAL
     Route: 048
     Dates: start: 20020118, end: 20020829
  3. PAXIL [Concomitant]

REACTIONS (1)
  - PULMONARY EMBOLISM [None]
